FAERS Safety Report 19890698 (Version 1)
Quarter: 2021Q3

REPORT INFORMATION
  Report Type: Report from Study
  Country: IT (occurrence: IT)
  Receive Date: 20210927
  Receipt Date: 20210927
  Transmission Date: 20211014
  Serious: Yes (Death)
  Sender: FDA-Public Use
  Company Number: IT-PURDUE-USA-2021-0285186

PATIENT
  Age: 73 Year
  Sex: Male

DRUGS (3)
  1. UNIFOL                             /00700101/ [Suspect]
     Active Substance: PROPOFOL
     Indication: HOMICIDE
     Dosage: UNK
     Route: 042
  2. OXYGEN. [Concomitant]
     Active Substance: OXYGEN
     Indication: PRODUCT USED FOR UNKNOWN INDICATION
     Dosage: UNK
     Route: 065
  3. NON?PMN MORPHINE SULFATE [Suspect]
     Active Substance: MORPHINE SULFATE
     Indication: HOMICIDE
     Route: 042

REACTIONS (1)
  - Obstructive airways disorder [Fatal]
